FAERS Safety Report 17581185 (Version 2)
Quarter: 2020Q2

REPORT INFORMATION
  Report Type: Spontaneous
  Country: US (occurrence: US)
  Receive Date: 20200325
  Receipt Date: 20200516
  Transmission Date: 20200713
  Serious: Yes (Hospitalization, Other)
  Sender: FDA-Public Use
  Company Number: US-UNITED THERAPEUTICS-UNT-2020-004683

PATIENT
  Sex: Male

DRUGS (3)
  1. REMODULIN [Suspect]
     Active Substance: TREPROSTINIL
     Dosage: 0.059 ?G/KG, CONTINUING
     Route: 041
     Dates: start: 201904
  2. REMODULIN [Suspect]
     Active Substance: TREPROSTINIL
     Indication: PULMONARY ARTERIAL HYPERTENSION
     Dosage: UNK UNK, CONTINUING
     Route: 041
     Dates: start: 20190409
  3. REMODULIN [Suspect]
     Active Substance: TREPROSTINIL
     Dosage: 0.040 ?G/KG, CONTINUING
     Route: 041

REACTIONS (7)
  - Chest pain [Unknown]
  - Dizziness [Unknown]
  - Cardiac arrest [Unknown]
  - Headache [Unknown]
  - Gastrointestinal disorder [Unknown]
  - Fatigue [Unknown]
  - Cyanosis [Unknown]
